FAERS Safety Report 6236459-7 (Version None)
Quarter: 2009Q2

REPORT INFORMATION
  Report Type: 
  Country: None (occurrence: None)
  Receive Date: 20090619
  Receipt Date: 20090616
  Transmission Date: 20091009
  Serious: Yes (Other)
  Sender: FDA-Public Use
  Company Number: GB-ABBOTT-09P-167-0580052-00

PATIENT
  Sex: Female

DRUGS (1)
  1. EPILIM SYRUP [Suspect]
     Indication: EPILEPSY
     Route: 048

REACTIONS (2)
  - GRAND MAL CONVULSION [None]
  - TREATMENT NONCOMPLIANCE [None]
